FAERS Safety Report 13543871 (Version 1)
Quarter: 2017Q2

REPORT INFORMATION
  Report Type: Report from Study
  Country: None (occurrence: BR)
  Receive Date: 20170515
  Receipt Date: 20170515
  Transmission Date: 20170830
  Serious: Yes (Death, Hospitalization, Other)
  Sender: FDA-Public Use
  Company Number: BR-ABBVIE-17K-020-1974275-00

PATIENT
  Age: 48 Year
  Sex: Male
  Weight: 74 kg

DRUGS (1)
  1. HUMIRA [Suspect]
     Active Substance: ADALIMUMAB
     Indication: RHEUMATOID ARTHRITIS
     Route: 058
     Dates: start: 20100101

REACTIONS (11)
  - Asthenia [Unknown]
  - Hypoaesthesia [Unknown]
  - Hepatitis fulminant [Fatal]
  - Renal failure [Not Recovered/Not Resolved]
  - Dengue fever [Recovered/Resolved]
  - Liver disorder [Unknown]
  - Septic shock [Fatal]
  - Pneumonia [Unknown]
  - Splenomegaly [Unknown]
  - Ascites [Not Recovered/Not Resolved]
  - Neuralgia [Unknown]

NARRATIVE: CASE EVENT DATE: 20170408
